FAERS Safety Report 12563671 (Version 1)
Quarter: 2016Q3

REPORT INFORMATION
  Report Type: Spontaneous
  Country: US (occurrence: US)
  Receive Date: 20160715
  Receipt Date: 20160715
  Transmission Date: 20161109
  Serious: Yes (Other)
  Sender: FDA-Public Use
  Company Number: US-TEVA-676683USA

PATIENT
  Sex: Female

DRUGS (7)
  1. ATENOLOL. [Concomitant]
     Active Substance: ATENOLOL
     Dates: start: 2012, end: 2013
  2. ATENOLOL-CHLORTHAL [Concomitant]
     Dates: start: 201302, end: 201306
  3. MULTIVITAMIN CENTRUM SILVER [Concomitant]
  4. CALTRATE D1 [Concomitant]
     Indication: BLOOD CALCIUM
  5. MULTI VITAMIN NATURE MADE [Concomitant]
  6. METFORMIN [Concomitant]
     Active Substance: METFORMIN HYDROCHLORIDE
     Indication: GLUCOSE TOLERANCE IMPAIRED
     Dosage: 1 1/2 PER DAY
     Dates: start: 20120418
  7. PRAZOSIN [Suspect]
     Active Substance: PRAZOSIN
     Dates: start: 2011, end: 201306

REACTIONS (7)
  - Swollen tongue [Recovered/Resolved]
  - Urticaria [Recovered/Resolved]
  - Hypersensitivity [Recovered/Resolved]
  - Swelling [Recovered/Resolved]
  - Lip swelling [Recovered/Resolved]
  - Pruritus [Recovered/Resolved]
  - Product substitution issue [Unknown]

NARRATIVE: CASE EVENT DATE: 2011
